FAERS Safety Report 5073792-9 (Version None)
Quarter: 2006Q3

REPORT INFORMATION
  Report Type: 
  Country: None (occurrence: None)
  Receive Date: 20060808
  Receipt Date: 20050512
  Transmission Date: 20061208
  Serious: No
  Sender: FDA-Public Use
  Company Number: US-AMGEN-KDL134012

PATIENT
  Sex: Male
  Weight: 88.5 kg

DRUGS (7)
  1. PROCRIT [Suspect]
     Indication: MYELODYSPLASTIC SYNDROME
     Route: 058
     Dates: start: 20020417, end: 20040922
  2. DILTIAZEM HCL [Concomitant]
  3. SIMVASTATIN [Concomitant]
  4. TERAZOSIN HCL [Concomitant]
  5. VITAMIN B6 [Concomitant]
  6. VITAMIN B-12 [Concomitant]
  7. BLOOD CELLS, PACKED HUMAN [Concomitant]

REACTIONS (2)
  - BLOOD IRON INCREASED [None]
  - PNEUMOTHORAX [None]
